FAERS Safety Report 11805369 (Version 1)
Quarter: 2015Q4

REPORT INFORMATION
  Report Type: Report from Study
  Country: US (occurrence: US)
  Receive Date: 20151207
  Receipt Date: 20151207
  Transmission Date: 20160305
  Serious: Yes (Hospitalization, Other)
  Sender: FDA-Public Use
  Company Number: US-ROCHE-1667820

PATIENT
  Age: 66 Year
  Sex: Female

DRUGS (4)
  1. BEVACIZUMAB [Suspect]
     Active Substance: BEVACIZUMAB
     Indication: HER-2 POSITIVE BREAST CANCER
     Dosage: 5 MG/KG OVER 30-90 MINUTES AS PART OF 28 DAY CYCLE
     Route: 042
  2. DASATINIB [Suspect]
     Active Substance: DASATINIB
     Indication: HER-2 POSITIVE BREAST CANCER
     Dosage: AS PART OF 28 DAY CYCLE. LATER REDUCED TO 50 MG
     Route: 048
  3. TRASTUZUMAB [Suspect]
     Active Substance: TRASTUZUMAB
     Indication: HER-2 POSITIVE BREAST CANCER
     Route: 065
  4. AMARYL [Suspect]
     Active Substance: GLIMEPIRIDE
     Indication: HER-2 POSITIVE BREAST CANCER
     Route: 065

REACTIONS (2)
  - Carbon monoxide diffusing capacity decreased [Unknown]
  - Pulmonary hypertension [Recovering/Resolving]

NARRATIVE: CASE EVENT DATE: 20100419
